FAERS Safety Report 15490556 (Version 1)
Quarter: 2018Q4

REPORT INFORMATION
  Report Type: Report from Study
  Country: BE (occurrence: BE)
  Receive Date: 20181011
  Receipt Date: 20181011
  Transmission Date: 20190205
  Serious: Yes (Hospitalization)
  Sender: FDA-Public Use
  Company Number: PHHY2018BE073729

PATIENT
  Age: 69 Year
  Sex: Female
  Weight: 39.6 kg

DRUGS (17)
  1. HYCAMTIN [Suspect]
     Active Substance: TOPOTECAN HYDROCHLORIDE
     Indication: SMALL CELL LUNG CANCER
     Dosage: 1.5 MG/M2, Q3W (DAY 1 TO 5 OF EACH 21 DAY CYCLE)
     Route: 042
     Dates: start: 20180625, end: 20180629
  2. AMLOR [Concomitant]
     Active Substance: AMLODIPINE BESYLATE
     Indication: CARDIOVASCULAR DISORDER
     Dosage: 5 MG, QD
     Route: 048
     Dates: start: 20180101
  3. MOVICOL [Concomitant]
     Active Substance: POLYETHYLENE GLYCOL 3350\POTASSIUM CHLORIDE\SODIUM BICARBONATE\SODIUM CHLORIDE
     Indication: CONSTIPATION
     Dosage: 13.8 G, QD
     Route: 048
     Dates: start: 20171001
  4. BEPANTHOL [Concomitant]
     Indication: PRURITUS
     Dosage: 1 DF, UNK (AS REQUIRED)
     Route: 061
     Dates: start: 20180625
  5. TRADONAL [Concomitant]
     Active Substance: TRAMADOL HYDROCHLORIDE
     Indication: PAIN
     Dosage: 50 MG, UNK (AS REQUIRED)
     Route: 048
     Dates: start: 20180614
  6. LITICAN [Concomitant]
     Active Substance: ALIZAPRIDE HYDROCHLORIDE
     Indication: NAUSEA
     Dosage: 50 MG, UNK (AS REQUIRED)
     Route: 048
     Dates: start: 20180620, end: 20180802
  7. PANTOMED (PANTOPRAZOLE SODIUM SESQUIHYDRATE) [Concomitant]
     Active Substance: PANTOPRAZOLE SODIUM
     Indication: ABDOMINAL PAIN UPPER
     Dosage: 20 MG, QD
     Route: 048
     Dates: start: 20171001, end: 20180813
  8. LITICAN [Concomitant]
     Active Substance: ALIZAPRIDE HYDROCHLORIDE
     Dosage: 50 MG, UNK (AS REQUIRED)
     Route: 042
     Dates: start: 20180803, end: 20180813
  9. NEULASTA [Concomitant]
     Active Substance: PEGFILGRASTIM
     Indication: NEUTROPENIA
     Dosage: UNK
     Route: 065
     Dates: start: 20180630, end: 20180630
  10. HYCAMTIN [Suspect]
     Active Substance: TOPOTECAN HYDROCHLORIDE
     Dosage: 1.25 MG/M2, Q3W (DAY 1 TO 5 OF EACH 21 DAY CYCLE)
     Route: 042
     Dates: start: 20180716
  11. LITICAN [Concomitant]
     Active Substance: ALIZAPRIDE HYDROCHLORIDE
     Dosage: 50 MG, UNK (AS REQUIRED)
     Route: 048
     Dates: start: 20180813
  12. INUVAIR [Concomitant]
     Active Substance: BECLOMETHASONE DIPROPIONATE\FORMOTEROL FUMARATE
     Indication: DYSPNOEA
     Dosage: 1 DF, BID
     Route: 055
     Dates: start: 20180501
  13. LORAMET [Concomitant]
     Active Substance: LORMETAZEPAM
     Indication: INSOMNIA
     Dosage: 1 MG, QD
     Route: 048
     Dates: start: 201709
  14. TAVANIC [Concomitant]
     Active Substance: LEVOFLOXACIN
     Indication: NEUTROPHIL COUNT DECREASED
     Dosage: UNK
     Route: 065
     Dates: start: 20180709, end: 20180713
  15. ROVALPITUZUMAB TESIRINE [Suspect]
     Active Substance: ROVALPITUZUMAB TESIRINE
     Indication: SMALL CELL LUNG CANCER
     Route: 042
  16. PANTOMED (PANTOPRAZOLE SODIUM SESQUIHYDRATE) [Concomitant]
     Active Substance: PANTOPRAZOLE SODIUM
     Dosage: 40 MG, QD
     Route: 048
     Dates: start: 20180814
  17. LYSOMUCIL [Concomitant]
     Active Substance: ACETYLCYSTEINE
     Indication: SECRETION DISCHARGE
     Dosage: 600 MG, BID
     Route: 048
     Dates: start: 20171001

REACTIONS (3)
  - Pyrexia [Recovered/Resolved]
  - C-reactive protein increased [Unknown]
  - Decreased appetite [Recovered/Resolved]

NARRATIVE: CASE EVENT DATE: 20180721
